FAERS Safety Report 22251794 (Version 2)
Quarter: 2024Q4

REPORT INFORMATION
  Report Type: Spontaneous
  Country: US (occurrence: US)
  Receive Date: 20230425
  Receipt Date: 20241122
  Transmission Date: 20250115
  Serious: Yes (Other)
  Sender: PFIZER
  Company Number: US-PFIZER INC-PV202300071376

PATIENT
  Age: 53 Year
  Sex: Female

DRUGS (2)
  1. TALZENNA [Suspect]
     Active Substance: TALAZOPARIB TOSYLATE
     Indication: Neoplasm malignant
     Dosage: TAKE AT THE SAME TIME EACH DAY. TAKE WITH OR WITHOUT FOOD. SWALLOW CAPSULES WHOLE.
     Route: 048
  2. TALZENNA [Suspect]
     Active Substance: TALAZOPARIB TOSYLATE
     Indication: Breast cancer female

REACTIONS (2)
  - Heart transplant [Unknown]
  - COVID-19 [Unknown]
